FAERS Safety Report 4737569-3 (Version None)
Quarter: 2005Q3

REPORT INFORMATION
  Report Type: 
  Country: None (occurrence: None)
  Receive Date: 20050809
  Receipt Date: 20050511
  Transmission Date: 20060218
  Serious: No
  Sender: FDA-Public Use
  Company Number: US-GLAXOSMITHKLINE-A0558069A

PATIENT
  Age: 68 Year
  Sex: Female
  Weight: 93.2 kg

DRUGS (13)
  1. COMMIT [Suspect]
     Route: 002
     Dates: start: 20050101
  2. LIPITOR [Concomitant]
     Dosage: 40MG PER DAY
     Route: 048
  3. GLIPIZIDE [Concomitant]
     Dosage: 5MG TWICE PER DAY
     Route: 048
  4. VERAPAMIL [Concomitant]
     Indication: RENAL DISORDER
     Dosage: 120MG PER DAY
     Route: 048
  5. LISINOPRIL [Concomitant]
     Dosage: 5MG PER DAY
     Route: 048
  6. TRICOR [Concomitant]
     Dosage: 145MG PER DAY
     Route: 048
  7. NEURONTIN [Concomitant]
     Indication: DIABETIC NEUROPATHY
     Dosage: 600MG THREE TIMES PER DAY
     Route: 048
  8. PAXIL [Concomitant]
     Indication: DEPRESSION
     Dosage: 30MG TWICE PER DAY
     Route: 048
  9. TOPAMAX [Concomitant]
     Dosage: 100MG TWICE PER DAY
     Route: 048
  10. PLAVIX [Concomitant]
     Dosage: 75MG PER DAY
     Route: 048
  11. ASPIRIN [Concomitant]
     Dosage: 325MG PER DAY
     Route: 048
  12. OMEGA 3 FISH OIL [Concomitant]
     Dosage: 1000MG THREE TIMES PER DAY
     Route: 048
  13. MULTI-VITAMIN [Concomitant]
     Route: 048

REACTIONS (3)
  - DRUG ABUSER [None]
  - NICOTINE DEPENDENCE [None]
  - OVARIAN MASS [None]
